FAERS Safety Report 8153424-3 (Version None)
Quarter: 2012Q1

REPORT INFORMATION
  Report Type: 
  Country: None (occurrence: None)
  Receive Date: 20120221
  Receipt Date: 20120215
  Transmission Date: 20120608
  Serious: Yes (Other)
  Sender: FDA-Public Use
  Company Number: DE-AMGEN-DEUSP2011046781

PATIENT
  Age: 78 Year
  Sex: Male
  Weight: 73 kg

DRUGS (5)
  1. SIMCAL [Concomitant]
     Dosage: UNK
  2. ASPIRIN [Concomitant]
     Dosage: 100 MG, UNK
  3. PROLIA [Suspect]
     Indication: OSTEOPOROSIS
     Dosage: 60 MG, UNK
     Route: 058
     Dates: end: 20110817
  4. CALCICARB [Concomitant]
     Dosage: UNK
  5. LEXOTANIL [Concomitant]
     Dosage: 6 MG, UNK

REACTIONS (1)
  - HYPERTENSION [None]
